FAERS Safety Report 19112853 (Version 3)
Quarter: 2023Q2

REPORT INFORMATION
  Report Type: Spontaneous
  Country: US (occurrence: US)
  Receive Date: 20210408
  Receipt Date: 20230522
  Transmission Date: 20230722
  Serious: Yes (Other)
  Sender: FDA-Public Use
  Company Number: US-PFIZER INC-2021366663

PATIENT
  Age: 55 Year
  Sex: Female

DRUGS (2)
  1. BOSULIF [Suspect]
     Active Substance: BOSUTINIB MONOHYDRATE
     Dosage: 400 MG, 1X/DAY (TAKE 1 TAB ONCE DAILY)
     Route: 048
  2. BOSULIF [Suspect]
     Active Substance: BOSUTINIB MONOHYDRATE
     Dosage: 200 MG, 1X/DAY, [DIRECTIONS TAKE 2 TABLETS (200MG) BY MOUTH ONCE DAILY]
     Route: 048

REACTIONS (1)
  - Adhesion [Unknown]

NARRATIVE: CASE EVENT DATE: 20210301
